FAERS Safety Report 7356366-6 (Version None)
Quarter: 2011Q1

REPORT INFORMATION
  Report Type: 
  Country: None (occurrence: None)
  Receive Date: 20110316
  Receipt Date: 20110309
  Transmission Date: 20110831
  Serious: Yes (Other)
  Sender: FDA-Public Use
  Company Number: GB-PFIZER INC-2011043975

PATIENT
  Age: 37 Year
  Sex: Female

DRUGS (20)
  1. LAMOTRIGINE [Suspect]
     Indication: GRAND MAL CONVULSION
  2. CLONAZEPAM [Suspect]
     Indication: GRAND MAL CONVULSION
  3. PHENYTOIN [Interacting]
     Indication: DROP ATTACKS
  4. RUFINAMIDE [Suspect]
     Indication: COMPLEX PARTIAL SEIZURES
  5. LACOSAMIDE [Interacting]
     Indication: COMPLEX PARTIAL SEIZURES
  6. LACOSAMIDE [Interacting]
     Indication: GRAND MAL CONVULSION
  7. LAMOTRIGINE [Suspect]
     Indication: COMPLEX PARTIAL SEIZURES
     Dosage: 450 MG, DAILY
  8. CLONAZEPAM [Suspect]
     Indication: PARTIAL SEIZURES
     Dosage: 2 MG, DAILY
  9. LAMOTRIGINE [Suspect]
     Indication: DROP ATTACKS
  10. RUFINAMIDE [Suspect]
     Indication: GRAND MAL CONVULSION
  11. LAMOTRIGINE [Suspect]
     Indication: PARTIAL SEIZURES
     Dosage: 500 MG, DAILY
  12. PHENYTOIN [Interacting]
     Indication: COMPLEX PARTIAL SEIZURES
     Dosage: 325 MG, DAILY
  13. PHENYTOIN [Interacting]
     Indication: GRAND MAL CONVULSION
  14. RUFINAMIDE [Suspect]
     Indication: DROP ATTACKS
  15. CLONAZEPAM [Suspect]
     Indication: COMPLEX PARTIAL SEIZURES
  16. CLONAZEPAM [Suspect]
     Indication: DROP ATTACKS
  17. LACOSAMIDE [Interacting]
     Indication: PARTIAL SEIZURES
     Dosage: 200 MG, DAILY
  18. RUFINAMIDE [Suspect]
     Indication: PARTIAL SEIZURES
     Dosage: 1000 MG, DAILY
  19. PHENYTOIN [Interacting]
     Indication: PARTIAL SEIZURES
     Dosage: 375 MG, DAILY
  20. LACOSAMIDE [Interacting]
     Indication: DROP ATTACKS

REACTIONS (6)
  - DIPLOPIA [None]
  - DRUG INTERACTION [None]
  - DRUG LEVEL INCREASED [None]
  - BALANCE DISORDER [None]
  - NEUROTOXICITY [None]
  - DIZZINESS [None]
